FAERS Safety Report 16815276 (Version 2)
Quarter: 2019Q3

REPORT INFORMATION
  Report Type: Spontaneous
  Country: JP (occurrence: JP)
  Receive Date: 20190917
  Receipt Date: 20190924
  Transmission Date: 20191005
  Serious: Yes (Other)
  Sender: FDA-Public Use
  Company Number: JP-SAKK-2019SA255123AA

PATIENT
  Age: 34 Year
  Sex: Male

DRUGS (3)
  1. KAKKONTOKASENKYUSHIN^I [CINNAMOMUM CASSIA BARK;CNIDIUM OFFICINALE RHIZ [Concomitant]
     Indication: PRODUCT USED FOR UNKNOWN INDICATION
     Dosage: UNK UNK, TID (BEFORE MEAL)
     Route: 065
     Dates: start: 201907
  2. DELLEGRA COMBINATION TABLETS [Suspect]
     Active Substance: FEXOFENADINE HYDROCHLORIDE\PSEUDOEPHEDRINE HYDROCHLORIDE
     Indication: SINUSITIS
     Dosage: 2 DF, BID
     Route: 048
     Dates: start: 20190827, end: 20190829
  3. DELLEGRA COMBINATION TABLETS [Suspect]
     Active Substance: FEXOFENADINE HYDROCHLORIDE\PSEUDOEPHEDRINE HYDROCHLORIDE
     Indication: NASAL CONGESTION

REACTIONS (3)
  - Laryngeal oedema [Recovered/Resolved]
  - Bronchial obstruction [Recovered/Resolved]
  - Insomnia [Recovering/Resolving]

NARRATIVE: CASE EVENT DATE: 20190829
